FAERS Safety Report 8328566-X (Version None)
Quarter: 2012Q2

REPORT INFORMATION
  Report Type: 
  Country: None (occurrence: None)
  Receive Date: 20120502
  Receipt Date: 20120426
  Transmission Date: 20120825
  Serious: Yes (Death, Other)
  Sender: FDA-Public Use
  Company Number: US-PFIZER INC-2012105955

PATIENT
  Sex: Female

DRUGS (1)
  1. CHANTIX [Suspect]
     Dosage: UNK
     Dates: start: 20070701

REACTIONS (5)
  - DEPRESSION [None]
  - COMPLETED SUICIDE [None]
  - ABNORMAL DREAMS [None]
  - ANXIETY [None]
  - ANGER [None]
